FAERS Safety Report 20896844 (Version 1)
Quarter: 2022Q2

REPORT INFORMATION
  Report Type: Spontaneous
  Country: US (occurrence: None)
  Receive Date: 20220530
  Receipt Date: 20220530
  Transmission Date: 20220721
  Serious: Yes (Other)
  Sender: FDA-Public Use
  Company Number: None

PATIENT
  Age: 33 Year
  Sex: Female
  Weight: 60.3 kg

DRUGS (1)
  1. ALBUTEROL SULFATE [Suspect]
     Active Substance: ALBUTEROL SULFATE
     Indication: Asthma
     Dosage: FREQUENCY : AS NEEDED;?
     Route: 048

REACTIONS (4)
  - Product packaging quantity issue [None]
  - Product use issue [None]
  - Dyspnoea [None]
  - Product dispensing error [None]

NARRATIVE: CASE EVENT DATE: 20220530
